FAERS Safety Report 10010006 (Version 2)
Quarter: 2014Q1

REPORT INFORMATION
  Report Type: Spontaneous
  Country: US (occurrence: US)
  Receive Date: 20140312
  Receipt Date: 20140312
  Transmission Date: 20141002
  Serious: Yes (Other)
  Sender: FDA-Public Use
  Company Number: US-INCYTE CORPORATION-2013IN000494

PATIENT
  Age: 77 Year
  Sex: Male
  Weight: 73.47 kg

DRUGS (5)
  1. JAKAFI [Suspect]
     Indication: MYELOFIBROSIS
     Dosage: 10 MG, BID
     Route: 048
     Dates: start: 20130209, end: 20130227
  2. JAKAFI [Suspect]
     Dosage: 10 MG, QD
     Route: 048
     Dates: start: 20130228, end: 201303
  3. JAKAFI [Suspect]
     Dosage: 10 MG, BID
     Route: 048
     Dates: start: 201303
  4. JAKAFI [Suspect]
     Dosage: 5 MG, BID
     Route: 048
     Dates: start: 2013
  5. EPOGEN [Concomitant]

REACTIONS (4)
  - Haemoglobin decreased [Recovering/Resolving]
  - Bone pain [Unknown]
  - Red blood cell count decreased [Unknown]
  - Fatigue [Unknown]
